FAERS Safety Report 6443291-8 (Version None)
Quarter: 2009Q4

REPORT INFORMATION
  Report Type: 
  Country: None (occurrence: None)
  Receive Date: 20091117
  Receipt Date: 20091110
  Transmission Date: 20100525
  Serious: Yes (Other)
  Sender: FDA-Public Use
  Company Number: PL-TYCO HEALTHCARE/MALLINCKRODT-T200902065

PATIENT
  Sex: Male

DRUGS (2)
  1. SODIUM IODIDE I 131 [Suspect]
     Indication: RADIOACTIVE IODINE THERAPY
     Dosage: 800 MBQ, SINGLE
  2. AMIODARONE HCL [Suspect]
     Indication: ARRHYTHMIA

REACTIONS (1)
  - PROSTATE CANCER [None]
